FAERS Safety Report 7312707-7 (Version None)
Quarter: 2011Q1

REPORT INFORMATION
  Report Type: 
  Country: None (occurrence: None)
  Receive Date: 20110224
  Receipt Date: 20101230
  Transmission Date: 20110831
  Serious: No
  Sender: FDA-Public Use
  Company Number: US-MYLANLABS-2011S1000030

PATIENT
  Age: 72 Year
  Sex: Male

DRUGS (7)
  1. IPRATROPIUM BROMIDE [Suspect]
     Indication: CHRONIC OBSTRUCTIVE PULMONARY DISEASE
     Dosage: USED TWICE
     Route: 055
     Dates: start: 20101201, end: 20101201
  2. MONTELUKAST SODIUM [Concomitant]
  3. FAMOTIDINE [Concomitant]
  4. ADVAIR DISKUS 100/50 [Concomitant]
  5. INSULIN [Concomitant]
  6. MAGNESIUM HYDROXIDE [Concomitant]
  7. IPRATROPIUM BROMIDE [Suspect]
     Indication: ASTHMA
     Dosage: USED TWICE
     Route: 055
     Dates: start: 20101201, end: 20101201

REACTIONS (1)
  - DYSPNOEA [None]
